FAERS Safety Report 4821303-2 (Version None)
Quarter: 2005Q4

REPORT INFORMATION
  Report Type: 
  Country: None (occurrence: None)
  Receive Date: 20051107
  Receipt Date: 20050720
  Transmission Date: 20060501
  Serious: No
  Sender: FDA-Public Use
  Company Number: US-GLAXOSMITHKLINE-A0567039A

PATIENT
  Sex: Female

DRUGS (7)
  1. AVANDAMET [Suspect]
     Route: 048
     Dates: start: 20031001
  2. SYNTHROID [Concomitant]
  3. UNKNOWN MEDICATION [Concomitant]
  4. INSULIN [Concomitant]
  5. SYNTHROID [Concomitant]
     Indication: THYROID DISORDER
     Dates: start: 20040101
  6. ACTOS [Concomitant]
     Dosage: 45MG PER DAY
     Route: 065
     Dates: start: 20050501
  7. FORTAMET [Concomitant]
     Dosage: 1000MG TWICE PER DAY
     Route: 065

REACTIONS (5)
  - BODY TEMPERATURE DECREASED [None]
  - DIZZINESS [None]
  - FATIGUE [None]
  - SOMNOLENCE [None]
  - WEIGHT INCREASED [None]
